FAERS Safety Report 5365831-2 (Version None)
Quarter: 2007Q2

REPORT INFORMATION
  Report Type: 
  Country: None (occurrence: None)
  Receive Date: 20070621
  Receipt Date: 20070607
  Transmission Date: 20071010
  Serious: Yes (Hospitalization)
  Sender: FDA-Public Use
  Company Number: US-SHR-US-2007-009509

PATIENT
  Age: 49 Year
  Sex: Female
  Weight: 90.703 kg

DRUGS (6)
  1. BETASERON [Suspect]
     Indication: RELAPSING-REMITTING MULTIPLE SCLEROSIS
     Dosage: 8 MIU, EVERY 2D
     Route: 058
     Dates: start: 20060316
  2. BETASERON [Suspect]
     Dosage: 8 MIU, EVERY 2D
     Route: 058
     Dates: end: 20070607
  3. LEXAPRO [Concomitant]
     Dosage: 30 MG, DAILY
  4. PROVIGIL [Concomitant]
     Dosage: 60 MG, DAILY
  5. LUNESTA [Concomitant]
     Dosage: DAILY
  6. FOLTX [Concomitant]
     Dosage: DAILY

REACTIONS (7)
  - BLOOD POTASSIUM DECREASED [None]
  - CONCOMITANT DISEASE AGGRAVATED [None]
  - MULTIPLE SCLEROSIS [None]
  - NAUSEA [None]
  - NEUTRALISING ANTIBODIES [None]
  - VERTIGO [None]
  - VOMITING [None]
